FAERS Safety Report 8605132-X (Version None)
Quarter: 2012Q3

REPORT INFORMATION
  Report Type: 
  Country: None (occurrence: None)
  Receive Date: 20120820
  Receipt Date: 20120815
  Transmission Date: 20120928
  Serious: Yes (Other)
  Sender: FDA-Public Use
  Company Number: US-BRISTOL-MYERS SQUIBB COMPANY-16504029

PATIENT
  Age: 19 Year
  Sex: Female
  Weight: 44 kg

DRUGS (3)
  1. IPILIMUMAB [Suspect]
     Indication: BONE SARCOMA
     Dosage: CYC 1-4(21 DAYS), CYC 5+ (12WKS) 10 MG/KG OVER 90 MIN DAY1. COURSES:1. LAST ADMIN: 10AUG11
     Route: 042
     Dates: start: 20110810
  2. VEPESID [Suspect]
  3. IFOSFAMIDE [Suspect]

REACTIONS (1)
  - WHITE BLOOD CELL COUNT DECREASED [None]
